FAERS Safety Report 13546365 (Version 2)
Quarter: 2017Q2

REPORT INFORMATION
  Report Type: Report from Study
  Country: CO (occurrence: CO)
  Receive Date: 20170515
  Receipt Date: 20170620
  Transmission Date: 20170830
  Serious: Yes (Other)
  Sender: FDA-Public Use
  Company Number: CO-SA-2017SA010488

PATIENT
  Age: 30 Year
  Sex: Female
  Weight: 56 kg

DRUGS (1)
  1. LEMTRADA [Suspect]
     Active Substance: ALEMTUZUMAB
     Indication: MULTIPLE SCLEROSIS
     Route: 041
     Dates: start: 20160427, end: 20160429

REACTIONS (10)
  - Haemoglobin urine present [Not Recovered/Not Resolved]
  - Lymphocyte count decreased [Recovered/Resolved]
  - Blood thyroid stimulating hormone increased [Unknown]
  - Leukopenia [Recovered/Resolved]
  - Nitrite urine present [Not Recovered/Not Resolved]
  - Urinary tract infection bacterial [Not Recovered/Not Resolved]
  - Bacterial test positive [Not Recovered/Not Resolved]
  - Leukocyturia [Not Recovered/Not Resolved]
  - Neutrophil count increased [Recovered/Resolved]
  - Eosinophil count increased [Recovered/Resolved]

NARRATIVE: CASE EVENT DATE: 20170112
